FAERS Safety Report 5302561-7 (Version None)
Quarter: 2007Q2

REPORT INFORMATION
  Report Type: 
  Country: None (occurrence: None)
  Receive Date: 20070419
  Receipt Date: 20070409
  Transmission Date: 20071010
  Serious: Yes (Hospitalization)
  Sender: FDA-Public Use
  Company Number: KR-PFIZER INC-2007026713

PATIENT
  Sex: Female
  Weight: 46 kg

DRUGS (4)
  1. SU-011,248 [Suspect]
     Indication: RENAL CELL CARCINOMA STAGE UNSPECIFIED
     Route: 048
  2. FAMOTIDINE [Concomitant]
     Route: 048
     Dates: start: 20070322, end: 20070330
  3. MOSAPRIDE [Concomitant]
     Route: 048
     Dates: start: 20070322, end: 20070330
  4. ULTRACET [Concomitant]
     Route: 048
     Dates: start: 20070316, end: 20070330

REACTIONS (3)
  - GALLBLADDER DISORDER [None]
  - GASTRIC HAEMORRHAGE [None]
  - THROMBOCYTOPENIA [None]
